FAERS Safety Report 21965537 (Version 6)
Quarter: 2023Q1

REPORT INFORMATION
  Report Type: Spontaneous
  Country: US (occurrence: US)
  Receive Date: 20230208
  Receipt Date: 20230331
  Transmission Date: 20230417
  Serious: No
  Sender: FDA-Public Use
  Company Number: US-JNJFOC-20230143581

PATIENT
  Age: 55 Year
  Sex: Female

DRUGS (5)
  1. UPTRAVI [Suspect]
     Active Substance: SELEXIPAG
     Indication: Pulmonary arterial hypertension
     Route: 048
  2. UPTRAVI [Suspect]
     Active Substance: SELEXIPAG
     Route: 048
     Dates: start: 20221130
  3. UPTRAVI [Suspect]
     Active Substance: SELEXIPAG
     Route: 048
     Dates: start: 20221130
  4. UPTRAVI [Suspect]
     Active Substance: SELEXIPAG
     Route: 048
     Dates: start: 202211
  5. UPTRAVI [Suspect]
     Active Substance: SELEXIPAG
     Dosage: 600MCG AM AND 800MCG PM MCG BID, USING 3-200MCG AM AND 1-800MCG TABLETS
     Route: 048
     Dates: start: 202211

REACTIONS (14)
  - Weight increased [Unknown]
  - Myalgia [Unknown]
  - Pain in jaw [Unknown]
  - Pain [Unknown]
  - Fluid retention [Unknown]
  - Dyspnoea [Unknown]
  - Peripheral swelling [Unknown]
  - Heart rate increased [Unknown]
  - Arthralgia [Unknown]
  - Headache [Unknown]
  - Diarrhoea [Not Recovered/Not Resolved]
  - Drug titration error [Unknown]
  - Decreased appetite [Not Recovered/Not Resolved]
  - Off label use [Unknown]
